FAERS Safety Report 21951158 (Version 1)
Quarter: 2023Q1

REPORT INFORMATION
  Report Type: Spontaneous
  Country: US (occurrence: US)
  Receive Date: 20230203
  Receipt Date: 20230203
  Transmission Date: 20230417
  Serious: No
  Sender: FDA-Public Use
  Company Number: US-BRISTOL-MYERS SQUIBB COMPANY-2023-016786

PATIENT
  Age: 74 Year
  Sex: Male
  Weight: 70.76 kg

DRUGS (3)
  1. ELIQUIS [Suspect]
     Active Substance: APIXABAN
     Indication: Deep vein thrombosis
     Dosage: DOSE : 2.5 MG;     FREQ : TWICE A DAY
     Route: 048
     Dates: start: 2022
  2. CLONAZEPAM [Concomitant]
     Active Substance: CLONAZEPAM
     Indication: Sleep disorder
     Dosage: 1 MG AT NIGHT FOR SLEEP
  3. QUETIAPINE [Concomitant]
     Active Substance: QUETIAPINE
     Dosage: QUETIAPINE SUPPLEMENT 25 MG

REACTIONS (2)
  - Blood iron decreased [Unknown]
  - Treatment noncompliance [Unknown]

NARRATIVE: CASE EVENT DATE: 20230131
